FAERS Safety Report 24130793 (Version 2)
Quarter: 2024Q3

REPORT INFORMATION
  Report Type: Spontaneous
  Country: HK (occurrence: HK)
  Receive Date: 20240724
  Receipt Date: 20240802
  Transmission Date: 20241016
  Serious: No
  Sender: ROCHE
  Company Number: HK-ROCHE-10000032318

PATIENT
  Age: 64 Year
  Sex: Female

DRUGS (3)
  1. ATEZOLIZUMAB [Suspect]
     Active Substance: ATEZOLIZUMAB
     Indication: Small cell lung cancer extensive stage
     Route: 065
  2. CARBOPLATIN [Suspect]
     Active Substance: CARBOPLATIN
     Indication: Small cell lung cancer
     Route: 065
  3. ETOPOSIDE [Suspect]
     Active Substance: ETOPOSIDE
     Indication: Small cell lung cancer
     Route: 065

REACTIONS (2)
  - Weight decreased [Unknown]
  - Type 1 diabetes mellitus [Unknown]
